FAERS Safety Report 17031121 (Version 1)
Quarter: 2019Q4

REPORT INFORMATION
  Report Type: Spontaneous
  Country: US (occurrence: US)
  Receive Date: 20191114
  Receipt Date: 20191114
  Transmission Date: 20200122
  Serious: No
  Sender: FDA-Public Use
  Company Number: US-009507513-1911USA005076

PATIENT
  Age: 17 Year
  Sex: Female
  Weight: 190.48 kg

DRUGS (1)
  1. NEXPLANON [Suspect]
     Active Substance: ETONOGESTREL
     Indication: CONTRACEPTION
     Dosage: 1 ROD UP TO 3 YEARS, LEFT ARM
     Dates: start: 20161016, end: 201909

REACTIONS (6)
  - Weight increased [Not Recovered/Not Resolved]
  - Amenorrhoea [Not Recovered/Not Resolved]
  - Mood swings [Not Recovered/Not Resolved]
  - Complication associated with device [Recovered/Resolved]
  - Depression [Not Recovered/Not Resolved]
  - Device deployment issue [Recovered/Resolved]

NARRATIVE: CASE EVENT DATE: 20161016
